FAERS Safety Report 8534224-9 (Version None)
Quarter: 2012Q3

REPORT INFORMATION
  Report Type: 
  Country: None (occurrence: None)
  Receive Date: 20120724
  Receipt Date: 20120710
  Transmission Date: 20120928
  Serious: No
  Sender: FDA-Public Use
  Company Number: US-ASTRAZENECA-2012SE47478

PATIENT
  Age: 76 Year
  Sex: Female
  Weight: 63.5 kg

DRUGS (4)
  1. OMEPRAZOLE [Suspect]
     Indication: GASTROOESOPHAGEAL REFLUX DISEASE
     Route: 048
  2. CRESTOR [Suspect]
     Indication: BLOOD CHOLESTEROL
     Route: 048
  3. MULTI-VITAMINS [Concomitant]
  4. CRESTOR [Suspect]
     Route: 048
     Dates: start: 20120401

REACTIONS (4)
  - DRUG INEFFECTIVE [None]
  - ARTHRITIS [None]
  - PAIN IN EXTREMITY [None]
  - CHEST PAIN [None]
